FAERS Safety Report 5928534-9 (Version None)
Quarter: 2008Q3

REPORT INFORMATION
  Report Type: 
  Country: None (occurrence: None)
  Receive Date: 20080923
  Receipt Date: 20071210
  Transmission Date: 20090109
  Serious: Yes (Hospitalization)
  Sender: FDA-Public Use
  Company Number: WAES 0712USA02681

PATIENT
  Age: 55 Year
  Sex: Male

DRUGS (1)
  1. VYTORIN [Suspect]
     Indication: HYPERCHOLESTEROLAEMIA
     Dosage: PO
     Route: 048

REACTIONS (1)
  - JAUNDICE [None]
